FAERS Safety Report 9426609 (Version 2)
Quarter: 2013Q3

REPORT INFORMATION
  Report Type: Spontaneous
  Country: US (occurrence: US)
  Receive Date: 20130730
  Receipt Date: 20130906
  Transmission Date: 20140515
  Serious: No
  Sender: FDA-Public Use
  Company Number: US-PFIZER INC-2013219907

PATIENT
  Age: 30 Year
  Sex: Female

DRUGS (2)
  1. FLECTOR [Suspect]
     Indication: BACK PAIN
     Dosage: UNK
  2. ADVIL [Concomitant]
     Dosage: UNK

REACTIONS (1)
  - Chest pain [Recovered/Resolved]
